FAERS Safety Report 4682747-5 (Version None)
Quarter: 2005Q2

REPORT INFORMATION
  Report Type: 
  Country: None (occurrence: None)
  Receive Date: 20050602
  Receipt Date: 20050412
  Transmission Date: 20051028
  Serious: No
  Sender: FDA-Public Use
  Company Number: USA050495867

PATIENT
  Age: 61 Year
  Sex: Male

DRUGS (2)
  1. CYMBALTA [Suspect]
     Indication: BACK PAIN
     Dosage: 30 MG
     Dates: start: 20050301
  2. VALIUM [Concomitant]

REACTIONS (2)
  - BODY TEMPERATURE INCREASED [None]
  - HEART RATE INCREASED [None]
